FAERS Safety Report 4612852-0 (Version None)
Quarter: 2005Q1

REPORT INFORMATION
  Report Type: 
  Country: None (occurrence: None)
  Receive Date: 20050318
  Receipt Date: 20050106
  Transmission Date: 20050727
  Serious: Yes (Hospitalization)
  Sender: FDA-Public Use
  Company Number: US-BRISTOL-MYERS SQUIBB COMPANY-12815783

PATIENT
  Age: 61 Year
  Sex: Female

DRUGS (4)
  1. CETUXIMAB [Suspect]
     Indication: OVARIAN CANCER
     Dosage: 12 COURSE, START DATE 04-OCT-04, DOSE DELAYED/OMITTED, D/C
     Route: 042
     Dates: start: 20041227, end: 20041227
  2. CARBOPLATIN [Suspect]
     Indication: OVARIAN CANCER
     Dosage: START DATE 04-OCT-04, REC'D 5 COURSES
     Route: 042
     Dates: start: 20041227, end: 20041227
  3. PACLITAXEL [Suspect]
     Indication: OVARIAN CANCER
     Dosage: START DATE 04-OCT-04, REC'D 5 COURSES
     Route: 042
     Dates: start: 20041227, end: 20041227
  4. DURAGESIC PATCH [Concomitant]
     Dates: start: 20040809, end: 20050105

REACTIONS (1)
  - DEHYDRATION [None]
